FAERS Safety Report 5373240-5 (Version None)
Quarter: 2007Q2

REPORT INFORMATION
  Report Type: 
  Country: None (occurrence: None)
  Receive Date: 20070628
  Receipt Date: 20070621
  Transmission Date: 20071010
  Serious: Yes (Disabling, Other)
  Sender: FDA-Public Use
  Company Number: PHBS2007RU04114

PATIENT
  Age: 50 Year
  Sex: Female

DRUGS (4)
  1. ALLOPURINOL [Concomitant]
     Indication: GOUT
     Dosage: 100 MG/DAY
     Route: 048
  2. VEROGALID [Concomitant]
     Indication: HYPERTENSION
     Dosage: 120 MG/DAY
     Route: 048
  3. QUADROPRIL [Suspect]
     Indication: HYPERTENSION
     Dosage: 3 MG, ONCE/SINGLE
     Route: 048
     Dates: start: 20070226, end: 20070226
  4. QUADROPRIL [Suspect]
     Dates: start: 20060601

REACTIONS (11)
  - BLOOD CREATININE INCREASED [None]
  - BLOOD PRESSURE INCREASED [None]
  - BLOOD UREA INCREASED [None]
  - ERYTHEMA [None]
  - HEADACHE [None]
  - MITRAL VALVE INCOMPETENCE [None]
  - PRURITUS [None]
  - PULMONARY VALVE INCOMPETENCE [None]
  - SWELLING FACE [None]
  - TRICUSPID VALVE INCOMPETENCE [None]
  - VENTRICULAR HYPERTROPHY [None]
